FAERS Safety Report 18123435 (Version 1)
Quarter: 2020Q3

REPORT INFORMATION
  Report Type: Report from Study
  Country: IT (occurrence: IT)
  Receive Date: 20200807
  Receipt Date: 20200807
  Transmission Date: 20201103
  Serious: Yes (Other)
  Sender: FDA-Public Use
  Company Number: IT-TEVA-2020-IT-1812540

PATIENT
  Age: 6 Decade
  Sex: Female

DRUGS (9)
  1. PREDNISONE. [Suspect]
     Active Substance: PREDNISONE
     Indication: IMMUNE-MEDIATED NEUROPATHY
     Dosage: 1 MG/KG DAILY;
     Route: 048
     Dates: start: 201703
  2. IMMUNOGLOBULIN (IMMUNOGLOBULIN NOS) [Suspect]
     Active Substance: IMMUNE GLOBULIN NOS
     Indication: IMMUNE-MEDIATED NEUROPATHY
     Dosage: 2 G/KG OVER 3 DAYS, FIVE COURSES
     Route: 042
     Dates: start: 201510
  3. CYCLOPHOSPHAMIDE. [Concomitant]
     Active Substance: CYCLOPHOSPHAMIDE
     Indication: ATAXIA
  4. PREDNISONE. [Suspect]
     Active Substance: PREDNISONE
     Indication: ATAXIA
  5. IMMUNOGLOBULIN (IMMUNOGLOBULIN NOS) [Suspect]
     Active Substance: IMMUNE GLOBULIN NOS
     Indication: DIPLOPIA
     Route: 042
     Dates: start: 201610
  6. RITUXIMAB. [Concomitant]
     Active Substance: RITUXIMAB
     Indication: ATAXIA
     Dosage: 5 MONTHS AFTER THE LAST INFUSION
     Route: 058
  7. IMMUNOGLOBULIN (IMMUNOGLOBULIN NOS) [Suspect]
     Active Substance: IMMUNE GLOBULIN NOS
     Indication: ATAXIA
  8. RITUXIMAB. [Concomitant]
     Active Substance: RITUXIMAB
     Indication: IMMUNE-MEDIATED NEUROPATHY
     Route: 041
  9. CYCLOPHOSPHAMIDE. [Concomitant]
     Active Substance: CYCLOPHOSPHAMIDE
     Indication: IMMUNE-MEDIATED NEUROPATHY

REACTIONS (4)
  - Diplopia [Recovering/Resolving]
  - Condition aggravated [Recovering/Resolving]
  - Immune-mediated neuropathy [Recovering/Resolving]
  - Ataxia [Recovering/Resolving]
